FAERS Safety Report 25463972 (Version 1)
Quarter: 2025Q2

REPORT INFORMATION
  Report Type: Spontaneous
  Country: US (occurrence: US)
  Receive Date: 20250621
  Receipt Date: 20250621
  Transmission Date: 20250716
  Serious: Yes (Death)
  Sender: AMGEN
  Company Number: US-AMGEN-USASP2025120690

PATIENT
  Age: 14 Year
  Sex: Female

DRUGS (1)
  1. BLINATUMOMAB [Suspect]
     Active Substance: BLINATUMOMAB
     Indication: B-cell type acute leukaemia
     Route: 065

REACTIONS (2)
  - Lineage switch leukaemia [Fatal]
  - Acute biphenotypic leukaemia [Fatal]
